FAERS Safety Report 18258875 (Version 1)
Quarter: 2020Q3

REPORT INFORMATION
  Report Type: Spontaneous
  Country: US (occurrence: US)
  Receive Date: 20200911
  Receipt Date: 20200911
  Transmission Date: 20201105
  Serious: Yes (Other)
  Sender: FDA-Public Use
  Company Number: US-PFIZER INC-2020351256

PATIENT
  Age: 4 Decade
  Sex: Female

DRUGS (1)
  1. TALAZOPARIB. [Suspect]
     Active Substance: TALAZOPARIB
     Indication: BREAST CANCER FEMALE
     Dosage: UNK

REACTIONS (3)
  - Anaemia [Unknown]
  - Migraine [Unknown]
  - Neutropenia [Unknown]
